FAERS Safety Report 12549288 (Version 1)
Quarter: 2016Q3

REPORT INFORMATION
  Report Type: Spontaneous
  Country: IT (occurrence: IT)
  Receive Date: 20160712
  Receipt Date: 20160712
  Transmission Date: 20161109
  Serious: Yes (Hospitalization, Other)
  Sender: FDA-Public Use
  Company Number: IT-GILEAD-2016-0217989

PATIENT
  Age: 61 Year
  Sex: Male

DRUGS (1)
  1. ZYDELIG [Suspect]
     Active Substance: IDELALISIB
     Indication: B-CELL LYMPHOMA
     Dosage: 150 MG, EVERY 12 HOURS; INTERRUPTED DAY 15 CYCLE 5
     Route: 065
     Dates: start: 2015

REACTIONS (2)
  - Urinary tract infection [Recovered/Resolved]
  - H1N1 influenza [Recovered/Resolved]
